FAERS Safety Report 11391104 (Version 1)
Quarter: 2015Q3

REPORT INFORMATION
  Report Type: Report from Study
  Country: CA (occurrence: CA)
  Receive Date: 20150818
  Receipt Date: 20150818
  Transmission Date: 20151125
  Serious: Yes (Other)
  Sender: FDA-Public Use
  Company Number: CA-ROCHE-1506960

PATIENT
  Sex: Female

DRUGS (7)
  1. PANTOLOC [Concomitant]
     Active Substance: PANTOPRAZOLE SODIUM
  2. FOLIC ACID. [Concomitant]
     Active Substance: FOLIC ACID
  3. VENTOLIN [Concomitant]
     Active Substance: ALBUTEROL SULFATE
  4. PLAQUENIL [Concomitant]
     Active Substance: HYDROXYCHLOROQUINE SULFATE
  5. ACTEMRA [Suspect]
     Active Substance: TOCILIZUMAB
     Indication: RHEUMATOID ARTHRITIS
     Route: 042
     Dates: start: 20141112
  6. VOLTAREN [Concomitant]
     Active Substance: DICLOFENAC SODIUM
  7. ASA [Concomitant]
     Active Substance: ASPIRIN

REACTIONS (2)
  - Supraventricular tachycardia [Unknown]
  - Malaise [Unknown]
